FAERS Safety Report 8178402-X (Version None)
Quarter: 2012Q1

REPORT INFORMATION
  Report Type: 
  Country: None (occurrence: None)
  Receive Date: 20120301
  Receipt Date: 20120220
  Transmission Date: 20120608
  Serious: Yes (Hospitalization)
  Sender: FDA-Public Use
  Company Number: JP-ELI_LILLY_AND_COMPANY-JP201202005757

PATIENT
  Age: 75 Year
  Sex: Female

DRUGS (2)
  1. FORTEO [Suspect]
     Route: 058
  2. FORTEO [Suspect]
     Dosage: UNK
     Route: 058
     Dates: start: 20120215

REACTIONS (1)
  - CHOLELITHIASIS [None]
